FAERS Safety Report 8325470-8 (Version None)
Quarter: 2012Q2

REPORT INFORMATION
  Report Type: 
  Country: None (occurrence: None)
  Receive Date: 20120501
  Receipt Date: 20120425
  Transmission Date: 20120825
  Serious: No
  Sender: FDA-Public Use
  Company Number: US-PFIZER INC-2012102815

PATIENT
  Sex: Male
  Weight: 83.9 kg

DRUGS (2)
  1. ANDROGEL [Concomitant]
     Indication: BLOOD TESTOSTERONE DECREASED
     Dosage: UNK, DAILY
     Dates: start: 20111225
  2. LATANOPROST [Suspect]
     Indication: GLAUCOMA
     Dosage: 1 TO 2 DROPS IN BOTH EYES  AT BEDTIME
     Route: 047
     Dates: start: 20020101

REACTIONS (3)
  - OCULAR HYPERAEMIA [None]
  - EYE IRRITATION [None]
  - INSOMNIA [None]
